FAERS Safety Report 4467699-5 (Version None)
Quarter: 2004Q4

REPORT INFORMATION
  Report Type: 
  Country: None (occurrence: None)
  Receive Date: 20041001
  Receipt Date: 20040921
  Transmission Date: 20050328
  Serious: Yes (Disabling)
  Sender: FDA-Public Use
  Company Number: 2004054409

PATIENT
  Sex: Female

DRUGS (3)
  1. NEURONTIN [Suspect]
     Indication: ILL-DEFINED DISORDER
     Dosage: 300 MG
  2. METAMUCIL-2 [Concomitant]
  3. HERBAL NOS/VITAMINS NOS [Concomitant]

REACTIONS (4)
  - BACK PAIN [None]
  - GAIT DISTURBANCE [None]
  - NECK PAIN [None]
  - PAIN IN EXTREMITY [None]
